FAERS Safety Report 8378377-4 (Version None)
Quarter: 2012Q2

REPORT INFORMATION
  Report Type: 
  Country: None (occurrence: None)
  Receive Date: 20120522
  Receipt Date: 20120514
  Transmission Date: 20120825
  Serious: Yes (Disabling)
  Sender: FDA-Public Use
  Company Number: GB-FRI-1000030680

PATIENT
  Age: 52 Year
  Sex: Female

DRUGS (4)
  1. QUETIAPINE [Concomitant]
  2. CITALOPRAM [Suspect]
     Indication: BIPOLAR I DISORDER
     Dosage: 60 MG
     Route: 048
  3. CITALOPRAM [Suspect]
     Dosage: 20 MG
     Route: 048
     Dates: end: 20111101
  4. LITHIUM CARBONATE [Concomitant]

REACTIONS (2)
  - OFF LABEL USE [None]
  - DEAFNESS NEUROSENSORY [None]
